FAERS Safety Report 24080366 (Version 2)
Quarter: 2024Q3

REPORT INFORMATION
  Report Type: Spontaneous
  Country: KR (occurrence: KR)
  Receive Date: 20240711
  Receipt Date: 20240724
  Transmission Date: 20241016
  Serious: Yes (Other)
  Sender: TAKEDA
  Company Number: KR-TAKEDA-2024TUS069784

PATIENT
  Age: 60 Year

DRUGS (2)
  1. OBIZUR [Suspect]
     Active Substance: ANTIHEMOPHILIC FACTOR PORCINE, B-DOMAIN TRUNCATED RECOMBINANT
     Indication: Product used for unknown indication
     Dosage: UNK UNK, TID
     Route: 065
     Dates: start: 20240702, end: 20240706
  2. COAGULATION FACTOR VIIA RECOMBINANT HUMAN [Suspect]
     Active Substance: COAGULATION FACTOR VIIA RECOMBINANT HUMAN
     Indication: Product used for unknown indication
     Dosage: UNK
     Route: 065

REACTIONS (1)
  - Drug ineffective [Not Recovered/Not Resolved]
